FAERS Safety Report 9525821 (Version 2)
Quarter: 2014Q1

REPORT INFORMATION
  Report Type: Spontaneous
  Country: GB (occurrence: GB)
  Receive Date: 20130916
  Receipt Date: 20140123
  Transmission Date: 20141002
  Serious: Yes (Life-Threatening, Hospitalization, Other)
  Sender: FDA-Public Use
  Company Number: GB-SANOFI-AVENTIS-2013SA089783

PATIENT
  Age: 50 Year
  Sex: Female
  Weight: 85 kg

DRUGS (3)
  1. TAXOTERE [Suspect]
     Indication: NEOADJUVANT THERAPY
     Route: 065
     Dates: start: 20130819
  2. ADRIAMYCIN [Suspect]
     Indication: NEOADJUVANT THERAPY
     Route: 065
     Dates: start: 20130819
  3. CYCLOPHOSPHAMIDE [Suspect]
     Indication: NEOADJUVANT THERAPY
     Route: 065

REACTIONS (6)
  - Metabolic acidosis [Recovering/Resolving]
  - Enteritis [Recovering/Resolving]
  - Hypotension [Recovering/Resolving]
  - Tachycardia [Recovering/Resolving]
  - Abdominal pain [Recovering/Resolving]
  - Sepsis [Recovering/Resolving]
